FAERS Safety Report 9098962 (Version 2)
Quarter: 2013Q1

REPORT INFORMATION
  Report Type: Spontaneous
  Country: CO (occurrence: CO)
  Receive Date: 20130213
  Receipt Date: 20130219
  Transmission Date: 20140127
  Serious: Yes (Other)
  Sender: FDA-Public Use
  Company Number: CO-JNJFOC-20130203483

PATIENT
  Age: 78 Year
  Sex: Male

DRUGS (1)
  1. REMINYL ER [Suspect]
     Indication: DEMENTIA
     Route: 048
     Dates: start: 20101203, end: 20120717

REACTIONS (2)
  - Dementia [Unknown]
  - Chronic obstructive pulmonary disease [Unknown]
